FAERS Safety Report 6966399-7 (Version None)
Quarter: 2010Q3

REPORT INFORMATION
  Report Type: 
  Country: None (occurrence: None)
  Receive Date: 20100904
  Receipt Date: 20100830
  Transmission Date: 20110219
  Serious: Yes (Life-Threatening, Hospitalization, Disabling, Other)
  Sender: FDA-Public Use
  Company Number: US-CELGENEUS-163-21880-10080182

PATIENT
  Sex: Female

DRUGS (3)
  1. REVLIMID [Suspect]
     Indication: MULTIPLE MYELOMA
     Route: 048
     Dates: start: 20090801, end: 20091001
  2. REVLIMID [Suspect]
     Route: 048
     Dates: start: 20100401, end: 20100501
  3. PAIN MEDICATION [Concomitant]

REACTIONS (3)
  - ENDOMETRIAL CANCER METASTATIC [None]
  - LEUKOPENIA [None]
  - SMALL INTESTINAL OBSTRUCTION [None]
